FAERS Safety Report 5510329-1 (Version None)
Quarter: 2007Q4

REPORT INFORMATION
  Report Type: 
  Country: None (occurrence: None)
  Receive Date: 20071108
  Receipt Date: 20071028
  Transmission Date: 20080405
  Serious: Yes (Other)
  Sender: FDA-Public Use
  Company Number: US-PFIZER INC-2007091122

PATIENT
  Sex: Male
  Weight: 81.818 kg

DRUGS (1)
  1. CHANTIX [Suspect]
     Indication: SMOKING CESSATION THERAPY
     Dates: start: 20070701, end: 20071016

REACTIONS (7)
  - ACTIVITIES OF DAILY LIVING IMPAIRED [None]
  - ANXIETY [None]
  - DECREASED APPETITE [None]
  - DEPRESSION [None]
  - IMPAIRED WORK ABILITY [None]
  - PANIC ATTACK [None]
  - SUICIDAL IDEATION [None]
